FAERS Safety Report 8954356 (Version 1)
Quarter: 2012Q4

REPORT INFORMATION
  Report Type: 
  Country: JP (occurrence: JP)
  Receive Date: 20121210
  Receipt Date: 20121210
  Transmission Date: 20130627
  Serious: Yes (Hospitalization, Other)
  Sender: FDA-Public Use
  Company Number: PHHY2012JP105707

PATIENT
  Sex: Male

DRUGS (1)
  1. OCTREOTIDE [Suspect]
     Indication: PANCREATIC NEUROENDOCRINE TUMOUR
     Dosage: UNK UKN, UNK
     Route: 058
     Dates: start: 20111118

REACTIONS (4)
  - Hepatic enzyme increased [Unknown]
  - Urinary tract infection [Unknown]
  - Metastases to liver [Unknown]
  - Metastases to bone [Unknown]
